FAERS Safety Report 7502560-0 (Version None)
Quarter: 2011Q2

REPORT INFORMATION
  Report Type: 
  Country: None (occurrence: None)
  Receive Date: 20110525
  Receipt Date: 20110516
  Transmission Date: 20111010
  Serious: Yes (Other)
  Sender: FDA-Public Use
  Company Number: US-ASTRAZENECA-2011SE25223

PATIENT
  Age: 55 Year
  Sex: Male

DRUGS (2)
  1. SYMBICORT [Suspect]
     Indication: ASTHMA
     Dosage: 160/4.5, 2 PUFFS TWO TIMES A DAY
     Route: 055
  2. SYMBICORT [Suspect]
     Indication: CHRONIC OBSTRUCTIVE PULMONARY DISEASE
     Dosage: 160/4.5, 2 PUFFS TWO TIMES A DAY
     Route: 055

REACTIONS (5)
  - CONVULSION [None]
  - DYSPNOEA [None]
  - GLIOBLASTOMA [None]
  - BRAIN CANCER METASTATIC [None]
  - DRUG DOSE OMISSION [None]
